FAERS Safety Report 9782506 (Version 2)
Quarter: 2014Q1

REPORT INFORMATION
  Report Type: Spontaneous
  Country: JP (occurrence: None)
  Receive Date: 20131220
  Receipt Date: 20140123
  Transmission Date: 20141002
  Serious: Yes (Life-Threatening)
  Sender: FDA-Public Use
  Company Number: SP07325

PATIENT
  Age: 70 Year
  Sex: Female

DRUGS (1)
  1. MOVIPREP [Suspect]
     Indication: BOWEL PREPARATION
     Route: 048
     Dates: start: 20131204, end: 20131204

REACTIONS (6)
  - Rash [None]
  - Anaphylactic shock [None]
  - Delirium [None]
  - Blood pressure immeasurable [None]
  - Wrong technique in drug usage process [None]
  - Oxygen saturation decreased [None]
